FAERS Safety Report 15315380 (Version 3)
Quarter: 2018Q4

REPORT INFORMATION
  Report Type: Report from Study
  Country: DE (occurrence: DE)
  Receive Date: 20180824
  Receipt Date: 20181011
  Transmission Date: 20190204
  Serious: Yes (Hospitalization)
  Sender: FDA-Public Use
  Company Number: DE-JNJFOC-20180809993

PATIENT
  Age: 65 Year
  Sex: Female
  Weight: 120 kg

DRUGS (24)
  1. IBRUTINIB [Suspect]
     Active Substance: IBRUTINIB
     Indication: CHRONIC LYMPHOCYTIC LEUKAEMIA
     Route: 048
     Dates: start: 20180416, end: 20180522
  2. METAMIZOLE [Concomitant]
     Active Substance: METAMIZOLE
     Route: 065
  3. DULAGLUTIDE. [Concomitant]
     Active Substance: DULAGLUTIDE
     Route: 065
     Dates: end: 20180516
  4. TAVOR (LORAZEPAM) [Concomitant]
     Active Substance: LORAZEPAM
     Route: 065
     Dates: start: 20180529
  5. COTRIM FORTE [Concomitant]
     Active Substance: SULFAMETHOXAZOLE\TRIMETHOPRIM
     Route: 065
     Dates: start: 20180815
  6. ZOPICLONE [Concomitant]
     Active Substance: ZOPICLONE
     Route: 065
     Dates: start: 20180815
  7. RAMIPRIL. [Concomitant]
     Active Substance: RAMIPRIL
     Route: 065
     Dates: start: 20180815
  8. ALLOPURINOL. [Concomitant]
     Active Substance: ALLOPURINOL
     Route: 065
  9. MOVICOL [Concomitant]
     Active Substance: POLYETHYLENE GLYCOL 3350\POTASSIUM CHLORIDE\SODIUM BICARBONATE\SODIUM CHLORIDE
     Route: 065
     Dates: start: 20180626
  10. ABSTRAL [Concomitant]
     Active Substance: FENTANYL CITRATE
     Route: 065
     Dates: start: 20180529
  11. PANTOPRAZOLE [Concomitant]
     Active Substance: PANTOPRAZOLE
     Route: 065
     Dates: start: 20180815
  12. LEVOTHYROXIN [Concomitant]
     Active Substance: LEVOTHYROXINE
     Route: 065
  13. MIRTAZAPIN [Concomitant]
     Active Substance: MIRTAZAPINE
     Route: 065
     Dates: start: 20180815
  14. METOPROLOL. [Concomitant]
     Active Substance: METOPROLOL
     Route: 065
  15. BIFITERAL [Concomitant]
     Active Substance: LACTULOSE
     Route: 065
     Dates: start: 20180522
  16. PALLADON [Concomitant]
     Active Substance: HYDROMORPHONE
     Route: 065
  17. ATORVASTATIN [Concomitant]
     Active Substance: ATORVASTATIN
     Route: 065
  18. METOCLOPRAMIDE. [Concomitant]
     Active Substance: METOCLOPRAMIDE
     Route: 065
     Dates: start: 20180626
  19. SERTRALINE HYDROCHLORIDE. [Concomitant]
     Active Substance: SERTRALINE HYDROCHLORIDE
     Route: 065
     Dates: start: 20180815
  20. IBRUTINIB [Suspect]
     Active Substance: IBRUTINIB
     Indication: CHRONIC LYMPHOCYTIC LEUKAEMIA
     Route: 048
     Dates: start: 20180530, end: 20180805
  21. INSULIN [Concomitant]
     Active Substance: INSULIN NOS
     Route: 065
  22. FUROSEMIDE. [Concomitant]
     Active Substance: FUROSEMIDE
     Route: 065
  23. LISINOPRIL. [Concomitant]
     Active Substance: LISINOPRIL
     Route: 065
  24. AMLODIPINE [Concomitant]
     Active Substance: AMLODIPINE BESYLATE
     Route: 065
     Dates: start: 20180815

REACTIONS (4)
  - Acute kidney injury [Recovering/Resolving]
  - Renal failure [Recovered/Resolved]
  - Hypercalcaemia [Recovered/Resolved]
  - Oedema [Recovering/Resolving]

NARRATIVE: CASE EVENT DATE: 20180807
